FAERS Safety Report 7347130-2 (Version None)
Quarter: 2011Q1

REPORT INFORMATION
  Report Type: 
  Country: None (occurrence: None)
  Receive Date: 20110303
  Receipt Date: 20110222
  Transmission Date: 20110831
  Serious: Yes (Hospitalization)
  Sender: FDA-Public Use
  Company Number: 027997

PATIENT
  Sex: Female
  Weight: 67.7 kg

DRUGS (4)
  1. CERTOLIZUMAB PEGOL [Suspect]
     Indication: CROHN'S DISEASE
     Dosage: SEE IMAGE
     Route: 058
     Dates: start: 20100831
  2. MULTI-VITAMINS [Concomitant]
  3. NEXIUM /01479303/ [Concomitant]
  4. PREDNISONE [Concomitant]

REACTIONS (1)
  - GASTRITIS VIRAL [None]
